FAERS Safety Report 17223490 (Version 1)
Quarter: 2020Q1

REPORT INFORMATION
  Report Type: Spontaneous
  Country: HR (occurrence: HR)
  Receive Date: 20200102
  Receipt Date: 20200102
  Transmission Date: 20200409
  Serious: Yes (Hospitalization)
  Sender: FDA-Public Use
  Company Number: HR-TEVA-2019-HR-1160358

PATIENT
  Age: 20 Year
  Sex: Male
  Weight: 72 kg

DRUGS (1)
  1. DOKSICIKLIN [Suspect]
     Active Substance: DOXYCYCLINE
     Indication: ACNE
     Dosage: 100 MG; 2X1 (200 MG PER DAY)
     Route: 048
     Dates: start: 20190904, end: 20191117

REACTIONS (4)
  - Abdominal pain [Recovering/Resolving]
  - Melaena [Recovering/Resolving]
  - Duodenal ulcer [Recovering/Resolving]
  - Haematochezia [Recovering/Resolving]

NARRATIVE: CASE EVENT DATE: 201911
